FAERS Safety Report 7314616-6 (Version None)
Quarter: 2011Q1

REPORT INFORMATION
  Report Type: 
  Country: None (occurrence: None)
  Receive Date: 20110225
  Receipt Date: 20101018
  Transmission Date: 20110831
  Serious: Yes (Other)
  Sender: FDA-Public Use
  Company Number: US-MYLANLABS-2010S1019169

PATIENT
  Sex: Male

DRUGS (2)
  1. ACCUTANE [Suspect]
  2. AMNESTEEM [Suspect]
     Indication: ACNE

REACTIONS (1)
  - INFLAMMATORY BOWEL DISEASE [None]
